FAERS Safety Report 4823088-2 (Version None)
Quarter: 2005Q4

REPORT INFORMATION
  Report Type: 
  Country: None (occurrence: None)
  Receive Date: 20051108
  Receipt Date: 20051025
  Transmission Date: 20060501
  Serious: Yes (Hospitalization)
  Sender: FDA-Public Use
  Company Number: NO-MERCK-0510NOR00056

PATIENT
  Age: 59 Year
  Sex: Male

DRUGS (6)
  1. VIOXX [Suspect]
     Indication: ANKYLOSING SPONDYLITIS
     Route: 048
     Dates: start: 20030128, end: 20041010
  2. VIOXX [Suspect]
     Indication: PAIN
     Route: 048
     Dates: start: 20030128, end: 20041010
  3. DIAZEPAM [Concomitant]
     Route: 065
  4. RISPERIDONE [Concomitant]
     Route: 065
  5. ZOPICLONE [Concomitant]
     Route: 065
  6. ESOMEPRAZOLE MAGNESIUM [Concomitant]
     Route: 065

REACTIONS (9)
  - ANGINA PECTORIS [None]
  - BLOOD CHOLESTEROL INCREASED [None]
  - CORONARY ARTERY DISEASE [None]
  - CORONARY ARTERY STENOSIS [None]
  - HYPERTENSION [None]
  - MYOCARDIAL INFARCTION [None]
  - SINUS TACHYCARDIA [None]
  - SUPRAVENTRICULAR TACHYCARDIA [None]
  - VENTRICULAR HYPERTROPHY [None]
